FAERS Safety Report 7571078-1 (Version None)
Quarter: 2011Q2

REPORT INFORMATION
  Report Type: 
  Country: None (occurrence: None)
  Receive Date: 20110624
  Receipt Date: 20110616
  Transmission Date: 20111010
  Serious: Yes (Death, Life-Threatening, Hospitalization)
  Sender: FDA-Public Use
  Company Number: US-ROCHE-785114

PATIENT
  Sex: Male
  Weight: 55.3 kg

DRUGS (10)
  1. PERCOCET [Concomitant]
     Dates: start: 20100922
  2. SUCRALFATE [Concomitant]
     Indication: GASTRIC ULCER
     Dates: start: 20100830
  3. CARBOPLATIN [Suspect]
     Indication: NON-SMALL CELL LUNG CANCER
     Dosage: DOSE: 6 AUC
     Route: 042
     Dates: start: 20101122, end: 20110124
  4. FOLIC ACID [Concomitant]
     Dates: start: 20101111
  5. BEVACIZUMAB [Suspect]
     Indication: NON-SMALL CELL LUNG CANCER
     Route: 042
     Dates: start: 20101122, end: 20110124
  6. BENAZEPRIL HYDROCHLORIDE [Concomitant]
     Indication: HYPERTENSION
     Dates: start: 20101215
  7. NEXIUM [Concomitant]
     Dates: start: 20100830
  8. BEVACIZUMAB [Suspect]
     Dosage: FREQUENCY: DAY 1 OF EVERY 21 DAYS LAST DOSE PRIOR TO SAE: 17 MARCH 2011
     Route: 042
     Dates: start: 20110224, end: 20110317
  9. PACLITAXEL [Suspect]
     Indication: NON-SMALL CELL LUNG CANCER
     Route: 042
     Dates: start: 20101122, end: 20110124
  10. PROMETHAZINE [Concomitant]
     Dates: start: 20101111

REACTIONS (4)
  - DEATH [None]
  - NEPHROTIC SYNDROME [None]
  - PULMONARY EMBOLISM [None]
  - DEEP VEIN THROMBOSIS [None]
